FAERS Safety Report 25092209 (Version 1)
Quarter: 2025Q1

REPORT INFORMATION
  Report Type: Spontaneous
  Country: US (occurrence: US)
  Receive Date: 20250319
  Receipt Date: 20250319
  Transmission Date: 20250409
  Serious: Yes (Hospitalization, Other)
  Sender: EMCURE PHARMACEUTICALS LTD
  Company Number: US-AVET LIFESCIENCES LTD-2025-AVET-000071

PATIENT
  Age: 49 Year
  Sex: Female

DRUGS (13)
  1. TACROLIMUS [Suspect]
     Active Substance: TACROLIMUS
     Indication: Graft versus host disease in gastrointestinal tract
  2. FOSCARNET [Suspect]
     Active Substance: FOSCARNET
     Indication: Cytomegalovirus viraemia
     Route: 042
     Dates: start: 2022
  3. FOSCARNET [Suspect]
     Active Substance: FOSCARNET
     Indication: Cytomegalovirus chorioretinitis
     Dates: start: 202308
  4. FOSCARNET [Suspect]
     Active Substance: FOSCARNET
     Route: 042
  5. PREDNISONE [Suspect]
     Active Substance: PREDNISONE
     Indication: Graft versus host disease in gastrointestinal tract
  6. maribivir [Concomitant]
     Indication: Cytomegalovirus chorioretinitis
  7. INQOVI [Concomitant]
     Active Substance: CEDAZURIDINE\DECITABINE
     Route: 048
  8. CLADRIBINE [Concomitant]
     Active Substance: CLADRIBINE
     Indication: Acute myeloid leukaemia
  9. CYTARABINE [Concomitant]
     Active Substance: CYTARABINE
     Indication: Acute myeloid leukaemia
  10. granulocyte-colony-stimulating factor/filgrastim/mitoxantrone [Concomitant]
     Indication: Acute myeloid leukaemia
  11. VENETOCLAX [Concomitant]
     Active Substance: VENETOCLAX
     Indication: Acute myeloid leukaemia
  12. VALGANCICLOVIR [Concomitant]
     Active Substance: VALGANCICLOVIR
     Indication: Cytomegalovirus viraemia
  13. GANCICLOVIR [Concomitant]
     Active Substance: GANCICLOVIR
     Indication: Cytomegalovirus viraemia
     Route: 042

REACTIONS (3)
  - Acute kidney injury [Recovering/Resolving]
  - Cytomegalovirus viraemia [Recovering/Resolving]
  - Cytomegalovirus chorioretinitis [Recovering/Resolving]

NARRATIVE: CASE EVENT DATE: 20221101
